FAERS Safety Report 9233808 (Version 1)
Quarter: 2013Q2

REPORT INFORMATION
  Report Type: Spontaneous
  Country: US (occurrence: US)
  Receive Date: 20130416
  Receipt Date: 20130416
  Transmission Date: 20140414
  Serious: No
  Sender: FDA-Public Use
  Company Number: US-BANPHARM-20120031

PATIENT
  Age: 83 Year
  Sex: Female
  Weight: 70.75 kg

DRUGS (3)
  1. NAPROXEN SODIUM 220 MG, PERRIGO [Suspect]
     Indication: ARTHRALGIA
     Dosage: 220 MG, QD,
     Route: 048
     Dates: start: 20120724
  2. ANTIHYPERTENSIVES [Concomitant]
     Dosage: ONGOING
     Route: 048
  3. DRUGS USED IN DIABETES [Concomitant]
     Dosage: ONGOING
     Route: 048

REACTIONS (1)
  - Dyspepsia [Recovered/Resolved]
